FAERS Safety Report 18896352 (Version 1)
Quarter: 2021Q1

REPORT INFORMATION
  Report Type: Spontaneous
  Country: US (occurrence: US)
  Receive Date: 20210211
  Receipt Date: 20210211
  Transmission Date: 20210420
  Serious: Yes (Hospitalization)
  Sender: FDA-Public Use
  Company Number: None

PATIENT
  Age: 76 Year
  Sex: Male
  Weight: 77.6 kg

DRUGS (8)
  1. DIAZEPAM. [Concomitant]
     Active Substance: DIAZEPAM
  2. LEVOTHYROXINE. [Concomitant]
     Active Substance: LEVOTHYROXINE
  3. LORATADINE. [Concomitant]
     Active Substance: LORATADINE
  4. PEMBROLIZUMAB. [Suspect]
     Active Substance: PEMBROLIZUMAB
     Indication: GLIOBLASTOMA
     Dosage: DOSE OR AMOUNT: 1 LESSION?FREQUENCY: SINGLE SX?ROUTE: MRI LASER ABIGATION SX
     Dates: start: 20200810, end: 20200810
  5. BENZONATATE. [Concomitant]
     Active Substance: BENZONATATE
  6. PEMBROLIZUMAB. [Suspect]
     Active Substance: PEMBROLIZUMAB
     Indication: GLIOBLASTOMA
     Route: 042
     Dates: start: 20200812
  7. PEMBROLIZUMAB. [Suspect]
     Active Substance: PEMBROLIZUMAB
     Indication: DISEASE RECURRENCE
     Route: 042
     Dates: start: 20200812
  8. PEMBROLIZUMAB. [Suspect]
     Active Substance: PEMBROLIZUMAB
     Indication: DISEASE RECURRENCE
     Dosage: DOSE OR AMOUNT: 1 LESSION?FREQUENCY: SINGLE SX?ROUTE: MRI LASER ABIGATION SX
     Dates: start: 20200810, end: 20200810

REACTIONS (8)
  - Disease progression [None]
  - Pain [None]
  - Oedema peripheral [None]
  - Visual impairment [None]
  - Headache [None]
  - Burning sensation [None]
  - Wound [None]
  - Mobility decreased [None]

NARRATIVE: CASE EVENT DATE: 20210203
